FAERS Safety Report 21519272 (Version 1)
Quarter: 2022Q4

REPORT INFORMATION
  Report Type: Spontaneous
  Country: US (occurrence: None)
  Receive Date: 20221027
  Receipt Date: 20221027
  Transmission Date: 20230113
  Serious: No
  Sender: FDA-Public Use
  Company Number: None

PATIENT
  Age: 81 Year
  Sex: Female
  Weight: 57.15 kg

DRUGS (4)
  1. NEBIVOLOL HYDROCHLORIDE [Suspect]
     Active Substance: NEBIVOLOL HYDROCHLORIDE
     Indication: Arrhythmia
     Dosage: FREQUENCY : DAILY;?
     Route: 048
     Dates: start: 20221012, end: 20221016
  2. BYSTOLIC [Concomitant]
  3. ESTRADRAL OINTMENT [Concomitant]
  4. MULTI-VITAMIN [Concomitant]
     Active Substance: .ALPHA.-TOCOPHEROL ACETATE, DL-\ASCORBIC ACID\CYANOCOBALAMIN\FLUORIDE ION\FOLIC ACID\NIACIN\PYRIDOXI

REACTIONS (6)
  - Paraesthesia [None]
  - Head discomfort [None]
  - Feeling abnormal [None]
  - Nervousness [None]
  - Balance disorder [None]
  - Product substitution issue [None]

NARRATIVE: CASE EVENT DATE: 20221012
